FAERS Safety Report 9121923 (Version 2)
Quarter: 2013Q1

REPORT INFORMATION
  Report Type: Spontaneous
  Country: JP (occurrence: JP)
  Receive Date: 20130227
  Receipt Date: 20130319
  Transmission Date: 20140127
  Serious: Yes (Other)
  Sender: FDA-Public Use
  Company Number: JP-PFIZER INC-2013070956

PATIENT
  Sex: 0

DRUGS (2)
  1. JZOLOFT [Suspect]
     Dosage: 50 MG, DAILY
     Route: 048
  2. LYRICA [Suspect]
     Dosage: 150 MG, DAILY
     Route: 048

REACTIONS (1)
  - Blood potassium increased [Recovered/Resolved]
